FAERS Safety Report 8356531-5 (Version None)
Quarter: 2012Q2

REPORT INFORMATION
  Report Type: 
  Country: None (occurrence: None)
  Receive Date: 20120514
  Receipt Date: 20120506
  Transmission Date: 20120825
  Serious: Yes (Other)
  Sender: FDA-Public Use
  Company Number: PHHY2012MX039714

PATIENT
  Sex: Female

DRUGS (6)
  1. TRAVATAN [Concomitant]
     Indication: GLAUCOMA
     Dosage: 1 DF, PER DAY
     Dates: start: 20111001
  2. AKATINOL [Concomitant]
     Indication: MEMORY IMPAIRMENT
     Dosage: 1 DF, PER DAY
     Dates: start: 20110101
  3. PROZAC [Concomitant]
     Indication: DEPRESSION
     Dosage: 1 DF, PER DAY
     Dates: start: 20111101
  4. EXFORGE [Suspect]
     Indication: HYPERTENSION
     Dosage: 2 DF (160 MG VALS AND 10 MG AMLO), PER DAY
     Dates: start: 20111001
  5. OMEPRAZOLE [Concomitant]
     Dosage: 1 DF, PER DAY
     Dates: start: 20111101
  6. COMBIGAN [Concomitant]
     Indication: GLAUCOMA
     Dosage: 2 DF, PER DAY
     Dates: start: 20111001

REACTIONS (2)
  - CARDIAC FAILURE [None]
  - PNEUMONIA [None]
